FAERS Safety Report 19134909 (Version 1)
Quarter: 2021Q2

REPORT INFORMATION
  Report Type: Spontaneous
  Country: US (occurrence: US)
  Receive Date: 20210414
  Receipt Date: 20210414
  Transmission Date: 20210717
  Serious: Yes (Other)
  Sender: FDA-Public Use
  Company Number: US-ELI_LILLY_AND_COMPANY-US202104004609

PATIENT
  Age: 41 Year

DRUGS (1)
  1. EMGALITY [Suspect]
     Active Substance: GALCANEZUMAB-GNLM
     Indication: MIGRAINE
     Dosage: UNK UNK, UNKNOWN
     Route: 065
     Dates: start: 201912, end: 20210206

REACTIONS (9)
  - Hot flush [Unknown]
  - Feeling abnormal [Unknown]
  - Suicidal ideation [Recovered/Resolved]
  - Palpitations [Unknown]
  - Rash [Unknown]
  - Fatigue [Unknown]
  - Dyspepsia [Unknown]
  - Weight increased [Unknown]
  - Diarrhoea [Unknown]
